FAERS Safety Report 9135792 (Version 3)
Quarter: 2013Q2

REPORT INFORMATION
  Report Type: Spontaneous
  Country: JP (occurrence: None)
  Receive Date: 20130222
  Receipt Date: 20130410
  Transmission Date: 20140414
  Serious: Yes (Death, Life-Threatening, Hospitalization)
  Sender: FDA-Public Use
  Company Number: AXC-2013-000056

PATIENT
  Age: 80 Year
  Sex: Male

DRUGS (5)
  1. URSODEOXYCHOLIC ACID [Suspect]
     Indication: PRODUCT USED FOR UNKNOWN INDICATION
     Route: 048
     Dates: start: 20120508, end: 20120711
  2. NESINA [Suspect]
     Indication: PRODUCT USED FOR UNKNOWN INDICATION
     Dosage: 1 DF, QD, ORAL
     Route: 048
     Dates: end: 20120711
  3. DIART [Suspect]
     Indication: PRODUCT USED FOR UNKNOWN INDICATION
     Route: 048
     Dates: end: 20120711
  4. ZYLORIC [Suspect]
     Indication: PRODUCT USED FOR UNKNOWN INDICATION
     Route: 048
     Dates: end: 20120711
  5. LASIX [Suspect]
     Indication: PRODUCT USED FOR UNKNOWN INDICATION
     Route: 048
     Dates: end: 20120711

REACTIONS (8)
  - Drug-induced liver injury [None]
  - Histiocytosis haematophagic [None]
  - Pancytopenia [None]
  - Cardio-respiratory arrest [None]
  - Haemodialysis [None]
  - Blood pressure decreased [None]
  - Serum ferritin increased [None]
  - Myelodysplastic syndrome [None]
